FAERS Safety Report 19767306 (Version 2)
Quarter: 2021Q3

REPORT INFORMATION
  Report Type: Spontaneous
  Country: AU (occurrence: AU)
  Receive Date: 20210830
  Receipt Date: 20210921
  Transmission Date: 20211014
  Serious: Yes (Death, Other)
  Sender: FDA-Public Use
  Company Number: AU-ALXN-A202109616

PATIENT

DRUGS (1)
  1. SOLIRIS [Suspect]
     Active Substance: ECULIZUMAB
     Indication: ATYPICAL HAEMOLYTIC URAEMIC SYNDROME
     Dosage: UNK, 3 VIALS
     Route: 065

REACTIONS (3)
  - Metastatic malignant melanoma [Unknown]
  - Thrombotic microangiopathy [Unknown]
  - Multiple organ dysfunction syndrome [Fatal]
